FAERS Safety Report 20664252 (Version 5)
Quarter: 2022Q4

REPORT INFORMATION
  Report Type: Report from Study
  Country: FR (occurrence: FR)
  Receive Date: 20220401
  Receipt Date: 20221118
  Transmission Date: 20230113
  Serious: Yes (Other)
  Sender: FDA-Public Use
  Company Number: FR-GILEAD-2021-0559108

PATIENT
  Age: 35 Year
  Sex: Male

DRUGS (22)
  1. PREZISTA [Suspect]
     Active Substance: DARUNAVIR ETHANOLATE
     Indication: HIV infection
     Dosage: UNK
     Route: 065
     Dates: start: 20211110, end: 20211124
  2. BICTEGRAVIR\EMTRICITABINE\TENOFOVIR ALAFENAMIDE [Suspect]
     Active Substance: BICTEGRAVIR\EMTRICITABINE\TENOFOVIR ALAFENAMIDE
     Indication: HIV-2 infection
     Dosage: 1 DOSAGE FORM, QD
     Route: 048
     Dates: start: 20190305, end: 20210113
  3. BICTEGRAVIR\EMTRICITABINE\TENOFOVIR ALAFENAMIDE [Suspect]
     Active Substance: BICTEGRAVIR\EMTRICITABINE\TENOFOVIR ALAFENAMIDE
     Dosage: UNK
     Route: 048
     Dates: start: 20210126
  4. DOLUTEGRAVIR [Suspect]
     Active Substance: DOLUTEGRAVIR
     Indication: HIV infection
     Dosage: 50 MG, QD
     Route: 065
  5. RITONAVIR [Suspect]
     Active Substance: RITONAVIR
     Indication: HIV infection
     Dosage: 1 DOSAGE FORM, QD
     Route: 065
  6. FOSCAVIR [Suspect]
     Active Substance: FOSCARNET SODIUM
     Indication: HIV infection
     Dosage: UNK
     Route: 065
     Dates: start: 20211110, end: 20211124
  7. IBALIZUMAB [Suspect]
     Active Substance: IBALIZUMAB
     Indication: HIV infection
     Dosage: 2000 MG, LOADING DOSE
     Route: 042
     Dates: start: 20211110
  8. IBALIZUMAB [Suspect]
     Active Substance: IBALIZUMAB
     Dosage: 800 MG, MAINTENANCE DOSE
     Route: 042
     Dates: start: 20211124, end: 20220104
  9. LENACAPAVIR [Concomitant]
     Active Substance: LENACAPAVIR
     Indication: HIV-2 infection
     Dosage: 300 MG
     Route: 065
  10. LENACAPAVIR [Concomitant]
     Active Substance: LENACAPAVIR
     Dosage: 600 MG
     Route: 065
     Dates: start: 20211216, end: 20211217
  11. LENACAPAVIR [Concomitant]
     Active Substance: LENACAPAVIR
     Dosage: 300 MG, DAY 8 AND 14JAN2022
     Route: 065
     Dates: start: 20211223, end: 20220114
  12. LENACAPAVIR [Concomitant]
     Active Substance: LENACAPAVIR
     Dosage: UNK
     Route: 058
     Dates: start: 20220801
  13. LENACAPAVIR [Concomitant]
     Active Substance: LENACAPAVIR
     Dosage: UNK
     Route: 048
     Dates: start: 202205
  14. CHOLECALCIFEROL [Concomitant]
     Active Substance: CHOLECALCIFEROL
     Indication: Product used for unknown indication
     Route: 065
  15. PENTAMIDINE [Concomitant]
     Active Substance: PENTAMIDINE
     Indication: Product used for unknown indication
     Route: 065
  16. HARUNGANA MADAGASCARIENSIS [Concomitant]
     Indication: Product used for unknown indication
     Route: 065
  17. LEUCOVORIN CALCIUM [Concomitant]
     Active Substance: LEUCOVORIN CALCIUM
     Indication: Product used for unknown indication
     Dosage: 25 MG, Q1WK
  18. ATAZANAVIR [Concomitant]
     Active Substance: ATAZANAVIR
     Indication: Product used for unknown indication
     Route: 065
  19. PREVENAR [Concomitant]
     Active Substance: PNEUMOCOCCAL 7-VALENT CONJUGATE VACCINE (DIPHTHERIA CRM197 PROTEIN)
     Indication: Product used for unknown indication
     Dates: start: 202111
  20. NORVIR [Concomitant]
     Active Substance: RITONAVIR
     Dosage: 100 MG, QD
     Dates: start: 20220516
  21. TIVICAY [Concomitant]
     Active Substance: DOLUTEGRAVIR SODIUM
     Dosage: UNK
     Dates: start: 20220516
  22. PNEUMOVAX 23 [Concomitant]
     Active Substance: PNEUMOCOCCAL VACCINE, POLYVALENT 23
     Dosage: UNK
     Dates: start: 202202

REACTIONS (4)
  - Blood HIV RNA [Recovered/Resolved]
  - Virologic failure [Recovering/Resolving]
  - Genotype drug resistance test positive [Unknown]
  - Off label use [Not Recovered/Not Resolved]

NARRATIVE: CASE EVENT DATE: 20211105
